FAERS Safety Report 9007091 (Version 1)
Quarter: 2013Q1

REPORT INFORMATION
  Report Type: Spontaneous
  Country: US (occurrence: US)
  Receive Date: 20130110
  Receipt Date: 20130110
  Transmission Date: 20140127
  Serious: Yes (Other)
  Sender: FDA-Public Use
  Company Number: US-INCYTE CORPORATION-2013IN000023

PATIENT
  Age: 74 Year
  Sex: Male

DRUGS (13)
  1. JAKAFI [Suspect]
     Indication: MYELOFIBROSIS
     Dosage: 15 MG, BID
     Route: 048
  2. FOLIC ACID [Concomitant]
     Dosage: UNK
  3. ATENOLOL [Concomitant]
  4. PRILOSEC [Concomitant]
  5. FUROSEMIDE [Concomitant]
  6. SPIRONOLACTONE [Concomitant]
  7. MVI [Concomitant]
  8. FISH OIL [Concomitant]
  9. IRON [Concomitant]
  10. FENTANYL DIS [Concomitant]
     Dosage: 25 MCG/HR
  11. HYDROCODONE W/APAP [Concomitant]
  12. COUMADIN [Concomitant]
  13. HYDROXYUREA [Concomitant]

REACTIONS (1)
  - Terminal state [Not Recovered/Not Resolved]
